FAERS Safety Report 13566797 (Version 1)
Quarter: 2017Q2

REPORT INFORMATION
  Report Type: Spontaneous
  Country: NL (occurrence: NL)
  Receive Date: 20170522
  Receipt Date: 20170522
  Transmission Date: 20170830
  Serious: Yes (Other)
  Sender: FDA-Public Use
  Company Number: NL-CIPLA LTD.-2017NL08966

PATIENT

DRUGS (4)
  1. LOPINAVIR [Suspect]
     Active Substance: LOPINAVIR
     Indication: HIV INFECTION
     Dosage: UNK, BID
     Route: 065
  2. RITONAVIR. [Suspect]
     Active Substance: RITONAVIR
     Indication: HIV INFECTION
     Dosage: UNK, BID
     Route: 065
  3. RITONAVIR. [Suspect]
     Active Substance: RITONAVIR
     Dosage: UNK, QD
     Route: 065
  4. LOPINAVIR [Suspect]
     Active Substance: LOPINAVIR
     Dosage: UNK, QD
     Route: 065

REACTIONS (3)
  - Viral load increased [Unknown]
  - Treatment noncompliance [Unknown]
  - Off label use [Unknown]
